FAERS Safety Report 8190906-2 (Version None)
Quarter: 2012Q1

REPORT INFORMATION
  Report Type: 
  Country: None (occurrence: None)
  Receive Date: 20120221
  Receipt Date: 20111128
  Transmission Date: 20120608
  Serious: No
  Sender: FDA-Public Use
  Company Number: 1000025779

PATIENT
  Age: 39 Year
  Sex: Female

DRUGS (7)
  1. NEXIUM [Concomitant]
  2. KLONOPIN [Concomitant]
  3. SIMVASTATIN [Concomitant]
  4. CLARITIN [Concomitant]
  5. REGLAN [Concomitant]
  6. VIIBRYD [Suspect]
     Indication: DEPRESSION
     Dosage: 10 MG (10 MG, 1 IN 1 D), ORAL
     Route: 048
     Dates: start: 20111116, end: 20111122
  7. ISOSORBIDE DINITRATE [Concomitant]

REACTIONS (1)
  - ALOPECIA [None]
